FAERS Safety Report 5453849-0 (Version None)
Quarter: 2007Q3

REPORT INFORMATION
  Report Type: 
  Country: None (occurrence: None)
  Receive Date: 20070917
  Receipt Date: 20070911
  Transmission Date: 20080115
  Serious: Yes (Other)
  Sender: FDA-Public Use
  Company Number: A0681940A

PATIENT
  Age: 31 Year
  Sex: Female

DRUGS (4)
  1. LAMOTRIGINE [Suspect]
     Indication: EPILEPSY
     Dosage: 400MG PER DAY
     Dates: start: 20050101
  2. PROMETRIUM [Concomitant]
  3. FOLIC ACID [Concomitant]
  4. VITAMIN CAP [Concomitant]

REACTIONS (1)
  - STILLBIRTH [None]
